FAERS Safety Report 8596334-X (Version None)
Quarter: 2012Q3

REPORT INFORMATION
  Report Type: 
  Country: None (occurrence: None)
  Receive Date: 20120815
  Receipt Date: 20120809
  Transmission Date: 20120928
  Serious: Yes (Hospitalization)
  Sender: FDA-Public Use
  Company Number: TW-ELI_LILLY_AND_COMPANY-TW201207008451

PATIENT
  Age: 80 Year
  Sex: Male

DRUGS (6)
  1. FORTEO [Suspect]
     Dosage: UNK
     Dates: start: 20120721
  2. DIOVAN [Concomitant]
  3. SENNOSIDE [Concomitant]
  4. PLAVIX [Concomitant]
  5. LIPITOR [Concomitant]
  6. LEVODOPA [Concomitant]

REACTIONS (3)
  - ALTERED STATE OF CONSCIOUSNESS [None]
  - PARKINSONISM [None]
  - MUSCULAR WEAKNESS [None]
